FAERS Safety Report 5647649-6 (Version None)
Quarter: 2008Q1

REPORT INFORMATION
  Report Type: 
  Country: None (occurrence: None)
  Receive Date: 20080303
  Receipt Date: 20080222
  Transmission Date: 20080703
  Serious: Yes (Life-Threatening, Hospitalization)
  Sender: FDA-Public Use
  Company Number: FR-ABBOTT-08P-056-0439663-00

PATIENT
  Sex: Female

DRUGS (7)
  1. DEPAKENE [Suspect]
     Indication: DRUG USE FOR UNKNOWN INDICATION
     Route: 048
     Dates: start: 20070628, end: 20070813
  2. ZOPICLONE [Concomitant]
     Indication: INSOMNIA
     Route: 048
     Dates: end: 20070813
  3. BUPRENORPHINE HYDROCHLORIDE [Concomitant]
     Indication: DRUG USE FOR UNKNOWN INDICATION
     Route: 048
     Dates: start: 20050101, end: 20070813
  4. BUPRENORPHINE HYDROCHLORIDE [Concomitant]
     Dosage: POSSIBLE ACUTE INTAKE, REDUCED TO HALF DOSE
     Route: 048
     Dates: start: 20070801
  5. ACAMPROSATE [Concomitant]
     Indication: ALCOHOL ABUSE
     Route: 048
     Dates: end: 20070813
  6. MIANSERIN HYDROCHLORIDE [Concomitant]
     Indication: DEPRESSION
     Route: 048
     Dates: end: 20070813
  7. OMEPRAZOLE [Concomitant]
     Indication: ABDOMINAL PAIN UPPER
     Route: 065
     Dates: start: 20070812, end: 20070813

REACTIONS (10)
  - ABDOMINAL PAIN UPPER [None]
  - ACUTE HEPATIC FAILURE [None]
  - ANAEMIA [None]
  - CONFUSIONAL STATE [None]
  - HEPATITIS ACUTE [None]
  - HEPATORENAL SYNDROME [None]
  - JAUNDICE [None]
  - RENAL FAILURE ACUTE [None]
  - THROMBOCYTOPENIA [None]
  - VOMITING [None]
